FAERS Safety Report 4413610-2 (Version None)
Quarter: 2004Q3

REPORT INFORMATION
  Report Type: 
  Country: None (occurrence: None)
  Receive Date: 20040728
  Receipt Date: 20040721
  Transmission Date: 20050211
  Serious: Yes (Hospitalization)
  Sender: FDA-Public Use
  Company Number: DE_040613812

PATIENT
  Age: 63 Year
  Sex: Male

DRUGS (3)
  1. GEMZAR [Suspect]
     Indication: PANCREATIC CARCINOMA
     Dosage: 1000 MG/M2
     Dates: start: 20040401, end: 20040614
  2. INSULIN [Concomitant]
  3. ENAHEXAL (ENALAPRIL MALEATE) [Concomitant]

REACTIONS (8)
  - ARTERIAL STENOSIS [None]
  - NECROSIS [None]
  - PAIN [None]
  - PARANEOPLASTIC SYNDROME [None]
  - PERIPHERAL OCCLUSIVE DISEASE [None]
  - POOR PERIPHERAL CIRCULATION [None]
  - SKIN DISCOLOURATION [None]
  - VASCULITIS [None]
